FAERS Safety Report 15328604 (Version 2)
Quarter: 2018Q3

REPORT INFORMATION
  Report Type: Spontaneous
  Country: US (occurrence: US)
  Receive Date: 20180829
  Receipt Date: 20180921
  Transmission Date: 20181010
  Serious: Yes (Other)
  Sender: FDA-Public Use
  Company Number: US-IGSA-SR10006081

PATIENT
  Age: 76 Year
  Sex: Male
  Weight: 132 kg

DRUGS (5)
  1. ALBUTEIN [Suspect]
     Active Substance: ALBUMIN HUMAN
     Indication: CHRONIC INFLAMMATORY DEMYELINATING POLYRADICULONEUROPATHY
     Dosage: 150 G, Q.WK.
     Route: 042
     Dates: start: 20180225, end: 20180225
  2. BENADRYL [Concomitant]
     Active Substance: DIPHENHYDRAMINE HYDROCHLORIDE
     Indication: PREMEDICATION
     Dosage: UNK
     Route: 048
     Dates: start: 20180225, end: 20180321
  3. ALBUTEIN [Suspect]
     Active Substance: ALBUMIN HUMAN
     Indication: PLASMAPHERESIS
     Dosage: 150 G, Q.WK.
     Route: 042
     Dates: start: 20180322
  4. HUMAN ALBUMIN OCTAPHARMA [Concomitant]
     Active Substance: ALBUMIN HUMAN
     Indication: CHRONIC INFLAMMATORY DEMYELINATING POLYRADICULONEUROPATHY
     Dosage: UNK
  5. HUMAN ALBUMIN OCTAPHARMA [Concomitant]
     Active Substance: ALBUMIN HUMAN
     Indication: PLASMAPHERESIS

REACTIONS (4)
  - Pruritus [Recovered/Resolved]
  - Dyspnoea [Recovered/Resolved]
  - Swollen tongue [Recovered/Resolved]
  - Pruritus [Recovering/Resolving]

NARRATIVE: CASE EVENT DATE: 20180225
